FAERS Safety Report 8258101-6 (Version None)
Quarter: 2012Q2

REPORT INFORMATION
  Report Type: 
  Country: None (occurrence: None)
  Receive Date: 20120404
  Receipt Date: 20120330
  Transmission Date: 20120825
  Serious: Yes (Other)
  Sender: FDA-Public Use
  Company Number: US-JNJFOC-20120400182

PATIENT
  Sex: Female
  Weight: 78.47 kg

DRUGS (9)
  1. REFRESH [Concomitant]
     Indication: DRY EYE
     Route: 031
  2. CRESTOR [Concomitant]
     Indication: BLOOD CHOLESTEROL
     Route: 048
     Dates: start: 20100101
  3. ALPHAGAN [Concomitant]
     Indication: INTRAOCULAR PRESSURE INCREASED
     Route: 031
     Dates: start: 20110101
  4. SINGULAIR [Concomitant]
     Indication: MULTIPLE ALLERGIES
     Route: 048
  5. ALLEGRA [Concomitant]
     Indication: INTRAOCULAR PRESSURE INCREASED
     Route: 048
  6. RESTASIS [Concomitant]
     Indication: DRY EYE
     Dosage: O.5 MG SOLUTION
     Route: 031
     Dates: start: 20120218
  7. UNKNOWN ALLERGY SHOTS [Concomitant]
     Indication: MULTIPLE ALLERGIES
     Route: 058
     Dates: start: 20100101
  8. LEVAQUIN [Suspect]
     Indication: SINUSITIS
     Route: 048
     Dates: start: 20120131, end: 20120207
  9. ATIVAN [Concomitant]
     Indication: ANXIETY
     Route: 048
     Dates: start: 20110101

REACTIONS (3)
  - ARTHRITIS [None]
  - MYALGIA [None]
  - ARTHROPATHY [None]
